FAERS Safety Report 17613918 (Version 2)
Quarter: 2020Q2

REPORT INFORMATION
  Report Type: Report from Study
  Country: BR (occurrence: BR)
  Receive Date: 20200402
  Receipt Date: 20200409
  Transmission Date: 20200713
  Serious: Yes (Other)
  Sender: FDA-Public Use
  Company Number: BR-ROCHE-2574174

PATIENT
  Sex: Female

DRUGS (4)
  1. LOSARTAN. [Concomitant]
     Active Substance: LOSARTAN
     Indication: HYPERTENSION
     Dosage: 1 DF, QD (STARTED 20 YEARS AGO)
     Route: 065
  2. XOLAIR [Suspect]
     Active Substance: OMALIZUMAB
     Route: 058
     Dates: start: 20180523
  3. XOLAIR [Suspect]
     Active Substance: OMALIZUMAB
     Indication: URTICARIA
     Dosage: 300 MG, UNK (2 AMPOULES EVERY 4 WEEKS)
     Route: 058
  4. XOLAIR [Suspect]
     Active Substance: OMALIZUMAB
     Dosage: 300 MG, UNK (2 AMPOULES EVERY 4 WEEKS)
     Route: 058
     Dates: start: 20180725

REACTIONS (9)
  - Dyspnoea [Not Recovered/Not Resolved]
  - Skin burning sensation [Not Recovered/Not Resolved]
  - Therapeutic response decreased [Unknown]
  - Hypersensitivity [Unknown]
  - Lung disorder [Not Recovered/Not Resolved]
  - Pruritus [Not Recovered/Not Resolved]
  - Bronchitis [Unknown]
  - Urticaria [Not Recovered/Not Resolved]
  - Pleural effusion [Not Recovered/Not Resolved]
